FAERS Safety Report 5570319-X (Version None)
Quarter: 2007Q4

REPORT INFORMATION
  Report Type: 
  Country: None (occurrence: None)
  Receive Date: 20071219
  Receipt Date: 20071219
  Transmission Date: 20080405
  Serious: Yes (Other)
  Sender: FDA-Public Use
  Company Number: None

PATIENT
  Age: 44 Year
  Sex: Male
  Weight: 98.4306 kg

DRUGS (8)
  1. CHANTIX [Suspect]
     Indication: SMOKING CESSATION THERAPY
     Dosage: 1MG TWICE DAILY PO
     Route: 048
     Dates: start: 20071017, end: 20071211
  2. DIVALPROEX SODIUM [Concomitant]
  3. METHADONE HCL [Concomitant]
  4. MULTIPLE VITAMIN [Concomitant]
  5. OXYCODONE 5/325 [Concomitant]
  6. QUETIAPINE [Concomitant]
  7. SERTRALINE [Concomitant]
  8. ZIPRASIDONE HCL [Concomitant]

REACTIONS (3)
  - DEPRESSION [None]
  - MOOD SWINGS [None]
  - SUICIDAL IDEATION [None]
